FAERS Safety Report 20385252 (Version 1)
Quarter: 2022Q1

REPORT INFORMATION
  Report Type: Spontaneous
  Country: US (occurrence: None)
  Receive Date: 20220127
  Receipt Date: 20220127
  Transmission Date: 20220423
  Serious: No
  Sender: FDA-Public Use
  Company Number: None

PATIENT
  Age: 22 Year
  Sex: Female

DRUGS (1)
  1. GLATIRAMER [Suspect]
     Active Substance: GLATIRAMER
     Dosage: OTHER FREQUENCY : OTHER;?
     Route: 058
     Dates: start: 202108

REACTIONS (3)
  - Swelling face [None]
  - Pruritus [None]
  - Injection related reaction [None]

NARRATIVE: CASE EVENT DATE: 20220127
